FAERS Safety Report 6610958-8 (Version None)
Quarter: 2010Q1

REPORT INFORMATION
  Report Type: 
  Country: None (occurrence: None)
  Receive Date: 20100222
  Receipt Date: 20100205
  Transmission Date: 20100710
  Serious: Yes (Death, Hospitalization)
  Sender: FDA-Public Use
  Company Number: CLOF-1000821

PATIENT
  Age: 9 Year
  Sex: Female

DRUGS (16)
  1. CLOFARABINE (CLOFARABINE) SOLUTION FOR INFUSION [Suspect]
     Indication: ACUTE LYMPHOCYTIC LEUKAEMIA
     Dosage: SEE IMAGE
     Route: 042
     Dates: start: 20070101, end: 20070101
  2. CLOFARABINE (CLOFARABINE) SOLUTION FOR INFUSION [Suspect]
     Indication: ACUTE LYMPHOCYTIC LEUKAEMIA
     Dosage: SEE IMAGE
     Route: 042
     Dates: start: 20070101, end: 20070101
  3. CLOFARABINE (CLOFARABINE) SOLUTION FOR INFUSION [Suspect]
     Indication: ACUTE LYMPHOCYTIC LEUKAEMIA
     Dosage: SEE IMAGE
     Route: 042
     Dates: start: 20070101, end: 20070101
  4. CLOFARABINE (CLOFARABINE) SOLUTION FOR INFUSION [Suspect]
     Indication: ACUTE LYMPHOCYTIC LEUKAEMIA
     Dosage: SEE IMAGE
     Route: 042
     Dates: start: 20080101, end: 20080101
  5. CYTARABINE [Suspect]
     Indication: ACUTE LYMPHOCYTIC LEUKAEMIA
     Dosage: 70 MG, ONCE, INTRATHECAL
     Route: 037
  6. METHOTREXATE [Suspect]
     Indication: ACUTE LYMPHOCYTIC LEUKAEMIA
     Dosage: 15 MG, ONCE, INTRATHECAL
     Route: 037
  7. ALLOPURINOL [Concomitant]
  8. CEFTAZIDIME [Concomitant]
  9. LEVOTHYROXINE SODIUM [Concomitant]
  10. LANSOPRAZOLE [Concomitant]
  11. ONDANSETRON [Concomitant]
  12. GRAVOL TAB [Concomitant]
  13. HYDROCORTONE [Concomitant]
  14. FLUCONAZOLE [Concomitant]
  15. FLUTICASONE PROPIONATE [Concomitant]
  16. GRANULOCYTE COLONY STIMULATING FACTOR (GRANULOCYTE COLONY STIMULATING [Concomitant]

REACTIONS (7)
  - CEREBRAL INFARCTION [None]
  - DEHYDRATION [None]
  - DIARRHOEA [None]
  - HYPOAESTHESIA [None]
  - PALMAR-PLANTAR ERYTHRODYSAESTHESIA SYNDROME [None]
  - PULMONARY OEDEMA [None]
  - RADIATION INJURY [None]
